FAERS Safety Report 19330124 (Version 2)
Quarter: 2021Q3

REPORT INFORMATION
  Report Type: Other
  Country: US (occurrence: US)
  Receive Date: 20210528
  Receipt Date: 20210714
  Transmission Date: 20211014
  Serious: Yes (Other)
  Sender: FDA-Public Use
  Company Number: US-DEXPHARM-20210720

PATIENT
  Sex: Male

DRUGS (3)
  1. PEMBROLIZUMAB. [Suspect]
     Active Substance: PEMBROLIZUMAB
     Indication: SMALL CELL LUNG CANCER
  2. ATENOLOL. [Interacting]
     Active Substance: ATENOLOL
  3. OMEPRAZOLE. [Interacting]
     Active Substance: OMEPRAZOLE

REACTIONS (2)
  - Drug interaction [Unknown]
  - Subacute cutaneous lupus erythematosus [Recovering/Resolving]
